FAERS Safety Report 8120392-X (Version None)
Quarter: 2012Q1

REPORT INFORMATION
  Report Type: 
  Country: None (occurrence: None)
  Receive Date: 20120207
  Receipt Date: 20120131
  Transmission Date: 20120608
  Serious: Yes (Other)
  Sender: FDA-Public Use
  Company Number: JP-GLAXOSMITHKLINE-B0779164A

PATIENT
  Age: 90 Year
  Sex: Male

DRUGS (3)
  1. FLOLAN [Suspect]
     Indication: PULMONARY ARTERIAL HYPERTENSION
     Route: 042
     Dates: start: 20120124, end: 20120130
  2. FLOLAN [Suspect]
     Route: 042
     Dates: start: 20120131
  3. FUROSEMIDE [Concomitant]
     Route: 065

REACTIONS (2)
  - PLEURAL EFFUSION [None]
  - BLOOD PRESSURE DECREASED [None]
